FAERS Safety Report 14551735 (Version 3)
Quarter: 2018Q3

REPORT INFORMATION
  Report Type: Report from Study
  Country: None (occurrence: US)
  Receive Date: 20180220
  Receipt Date: 20180725
  Transmission Date: 20181010
  Serious: Yes (Other)
  Sender: FDA-Public Use
  Company Number: US-ABBVIE-17K-163-1924162-00

PATIENT
  Age: 54 Year
  Sex: Female

DRUGS (2)
  1. HUMIRA [Suspect]
     Active Substance: ADALIMUMAB
     Route: 058
  2. HUMIRA [Suspect]
     Active Substance: ADALIMUMAB
     Indication: RHEUMATOID ARTHRITIS
     Route: 058

REACTIONS (15)
  - Hypertension [Unknown]
  - Ligament sprain [Unknown]
  - Renal impairment [Unknown]
  - Pain in extremity [Unknown]
  - Arthralgia [Unknown]
  - Tendon injury [Unknown]
  - Arthritis [Not Recovered/Not Resolved]
  - Rheumatoid arthritis [Unknown]
  - Renal artery occlusion [Unknown]
  - Drug ineffective [Unknown]
  - Sinusitis [Unknown]
  - Renal failure [Unknown]
  - Hand deformity [Unknown]
  - Burning sensation [Unknown]
  - Arthritis [Unknown]

NARRATIVE: CASE EVENT DATE: 201704
